FAERS Safety Report 7419873-3 (Version None)
Quarter: 2011Q2

REPORT INFORMATION
  Report Type: 
  Country: None (occurrence: None)
  Receive Date: 20110413
  Receipt Date: 20110413
  Transmission Date: 20111010
  Serious: Yes (Life-Threatening, Hospitalization, Other)
  Sender: FDA-Public Use
  Company Number: None

PATIENT
  Sex: Male
  Weight: 100.2449 kg

DRUGS (7)
  1. SIMVASTATIN [Concomitant]
  2. DICLOFENAC SODIUM [Concomitant]
  3. LISINOPRIL [Suspect]
     Indication: BLOOD PRESSURE
     Dosage: 40 MG DAILY PO
     Route: 048
     Dates: start: 20101213, end: 20110328
  4. AMLODIPINE BESYLATE [Concomitant]
  5. HYDROCHLOROTHIAZIDE [Concomitant]
  6. IPRATROPIUM BROMIDE [Concomitant]
  7. PROVENTIL-HFA [Concomitant]

REACTIONS (4)
  - SWOLLEN TONGUE [None]
  - LIP SWELLING [None]
  - HYPERSENSITIVITY [None]
  - TRANSIENT ISCHAEMIC ATTACK [None]
